FAERS Safety Report 7379555-3 (Version None)
Quarter: 2011Q1

REPORT INFORMATION
  Report Type: 
  Country: None (occurrence: None)
  Receive Date: 20110329
  Receipt Date: 20110316
  Transmission Date: 20110831
  Serious: Yes (Hospitalization)
  Sender: FDA-Public Use
  Company Number: US-BIOGENIDEC-2011BI010716

PATIENT
  Age: 44 Year
  Sex: Female

DRUGS (2)
  1. AMPYRA [Concomitant]
     Indication: MULTIPLE SCLEROSIS
  2. TYSABRI [Suspect]
     Indication: MULTIPLE SCLEROSIS
     Route: 042
     Dates: start: 20091008

REACTIONS (3)
  - ABASIA [None]
  - BONE PAIN [None]
  - GAIT DISTURBANCE [None]
